FAERS Safety Report 19882524 (Version 1)
Quarter: 2021Q3

REPORT INFORMATION
  Report Type: Other
  Country: US (occurrence: US)
  Receive Date: 20210925
  Receipt Date: 20210925
  Transmission Date: 20211014
  Serious: Yes (Hospitalization)
  Sender: FDA-Public Use
  Company Number: US-NEUROCRINE BIOSCIENCES INC.-2021NBI05345

PATIENT

DRUGS (1)
  1. INGREZZA [Suspect]
     Active Substance: VALBENAZINE
     Indication: TOURETTE^S DISORDER
     Dosage: 40 MILLIGRAM, QD
     Route: 048
     Dates: start: 20210808, end: 20210812

REACTIONS (7)
  - Feeding disorder [Unknown]
  - Fatigue [Unknown]
  - Mouth ulceration [Unknown]
  - Pyrexia [Unknown]
  - Dizziness [Unknown]
  - Pain of skin [Unknown]
  - Off label use [Unknown]

NARRATIVE: CASE EVENT DATE: 20210808
